FAERS Safety Report 6207393-3 (Version None)
Quarter: 2009Q2

REPORT INFORMATION
  Report Type: 
  Country: None (occurrence: None)
  Receive Date: 20090528
  Receipt Date: 20090521
  Transmission Date: 20091009
  Serious: Yes (Death)
  Sender: FDA-Public Use
  Company Number: CN-PFIZER INC-2009170807

PATIENT
  Age: 74 Year

DRUGS (2)
  1. SUNITINIB MALATE [Suspect]
     Indication: RENAL CELL CARCINOMA
     Dosage: 50 MG, 1X/DAY
     Route: 048
     Dates: start: 20080830, end: 20090129
  2. FELODIPINE [Concomitant]
     Route: 048
     Dates: start: 20030101

REACTIONS (1)
  - CEREBRAL HAEMORRHAGE [None]
